FAERS Safety Report 15496747 (Version 1)
Quarter: 2018Q4

REPORT INFORMATION
  Report Type: Spontaneous
  Country: CA (occurrence: CA)
  Receive Date: 20181014
  Receipt Date: 20181014
  Transmission Date: 20190205
  Serious: Yes (Death)
  Sender: FDA-Public Use
  Company Number: PHHY2018CA123048

PATIENT
  Age: 20 Year
  Sex: Female

DRUGS (4)
  1. PAZOPANIB [Suspect]
     Active Substance: PAZOPANIB
     Indication: ENDOMETRIAL STROMAL SARCOMA
     Dosage: UNK
     Route: 065
     Dates: start: 2015
  2. GEMCITABINE [Suspect]
     Active Substance: GEMCITABINE\GEMCITABINE HYDROCHLORIDE
     Indication: ENDOMETRIAL STROMAL SARCOMA
     Dosage: UNK
     Route: 065
     Dates: start: 2015
  3. IFOSFAMIDE. [Suspect]
     Active Substance: IFOSFAMIDE
     Indication: ENDOMETRIAL STROMAL SARCOMA
     Dosage: UNK
     Route: 065
     Dates: start: 2015
  4. ADRIAMYCIN [Suspect]
     Active Substance: DOXORUBICIN HYDROCHLORIDE
     Indication: ENDOMETRIAL STROMAL SARCOMA
     Dosage: UNK
     Route: 065
     Dates: start: 2015

REACTIONS (2)
  - Product use in unapproved indication [Unknown]
  - Metastases to lung [Fatal]

NARRATIVE: CASE EVENT DATE: 201603
